FAERS Safety Report 9003534 (Version 1)
Quarter: 2013Q1

REPORT INFORMATION
  Report Type: Spontaneous
  Country: GB (occurrence: GB)
  Receive Date: 20130108
  Receipt Date: 20130108
  Transmission Date: 20140127
  Serious: Yes (Hospitalization)
  Sender: FDA-Public Use
  Company Number: PHHY2013GB001473

PATIENT
  Age: 79 Year
  Sex: Male

DRUGS (13)
  1. ATORVASTATIN [Suspect]
     Indication: HYPERCHOLESTEROLAEMIA
     Dosage: 40 MG, QD
     Route: 048
     Dates: start: 200311, end: 20040311
  2. IBUPROFEN [Suspect]
     Dosage: 400 MG, TID
     Route: 048
     Dates: start: 2001, end: 20040311
  3. AVANDIA [Suspect]
     Indication: TYPE 2 DIABETES MELLITUS
     Dosage: 8 MG, QD
     Route: 048
     Dates: start: 200210, end: 20040316
  4. METFORMIN [Concomitant]
     Dosage: 2550 MG, UNK
     Dates: start: 20040311
  5. METFORMIN [Concomitant]
     Dosage: 500 MG, UNK
  6. GLICLAZIDE [Concomitant]
     Dosage: 160 MG, UNK
     Route: 065
  7. LEVOTHYROXINE SODIUM [Concomitant]
     Dosage: 175 UG, QD
     Route: 065
  8. RAMIPRIL [Concomitant]
     Dosage: 2.5 MG, QD
     Route: 065
  9. OXYBUTYNIN [Concomitant]
     Dosage: 10 MG, QD
     Route: 065
     Dates: start: 200311
  10. CO-CODAMOL [Concomitant]
     Route: 065
  11. SILDENAFIL [Concomitant]
     Dosage: 50 MG, UNK
     Route: 065
  12. AMOXICILLIN [Concomitant]
     Dosage: 750 MG, UNK
     Route: 065
     Dates: start: 20031120, end: 20031125
  13. DOXYCYCLINE [Concomitant]
     Dosage: 100 MG, QD
     Route: 065
     Dates: start: 20031128, end: 20031205

REACTIONS (3)
  - Jaundice [Recovered/Resolved]
  - Cholelithiasis [Recovering/Resolving]
  - Liver function test abnormal [Recovering/Resolving]
